FAERS Safety Report 18911656 (Version 14)
Quarter: 2022Q4

REPORT INFORMATION
  Report Type: Report from Study
  Country: CA (occurrence: CA)
  Receive Date: 20210218
  Receipt Date: 20221025
  Transmission Date: 20230113
  Serious: Yes (Hospitalization, Other)
  Sender: FDA-Public Use
  Company Number: CA-BRISTOL-MYERS SQUIBB COMPANY-BMS-2021-013849

PATIENT
  Age: 53 Year
  Sex: Male
  Weight: 65 kg

DRUGS (4)
  1. NIVOLUMAB [Suspect]
     Active Substance: NIVOLUMAB
     Indication: Squamous cell carcinoma of head and neck
     Dosage: 480 MILLIGRAM, Q4WK?ACD3197/1901592, BATCH NUMBER ?EXPIRY DATE: 31-JAN-2024
     Route: 042
     Dates: start: 20210114
  2. NIVOLUMAB [Suspect]
     Active Substance: NIVOLUMAB
     Route: 042
     Dates: start: 20210114
  3. NIVOLUMAB [Suspect]
     Active Substance: NIVOLUMAB
     Dosage: Q4WK (EVERY 4 WEEK)
     Route: 042
     Dates: start: 20210114
  4. PERINDOPRIL [Concomitant]
     Active Substance: PERINDOPRIL
     Indication: Product used for unknown indication
     Dosage: UNK
     Route: 065

REACTIONS (6)
  - Aphasia [Recovered/Resolved]
  - Sinusitis [Unknown]
  - Chest pain [Unknown]
  - Blood pressure increased [Unknown]
  - Rhinitis [Unknown]
  - Product dose omission issue [Unknown]

NARRATIVE: CASE EVENT DATE: 20210129
